FAERS Safety Report 6144471 (Version 2)
Quarter: 2018Q1

REPORT INFORMATION
  Report Type: Spontaneous
  Country: FR (occurrence: FR)
  Receive Date: 20061010
  Receipt Date: 20180315
  Transmission Date: 20180509
  Serious: Yes (Hospitalization)
  Sender: FDA-Public Use
  Company Number: FR-BRISTOL-MYERS SQUIBB COMPANY-13533237

PATIENT
  Age: 47 Year
  Sex: Female

DRUGS (6)
  1. PREVISCAN (FLUINDIONE) [Suspect]
     Active Substance: FLUINDIONE
     Indication: PRODUCT USED FOR UNKNOWN INDICATION
     Dosage: UNK
     Route: 048
     Dates: start: 200511, end: 200512
  2. SINTROM [Suspect]
     Active Substance: ACENOCOUMAROL
     Indication: PRODUCT USED FOR UNKNOWN INDICATION
     Dosage: UNK
     Route: 048
     Dates: start: 200512, end: 200602
  3. COUMADIN [Suspect]
     Active Substance: WARFARIN SODIUM
     Indication: PHLEBITIS
     Dosage: UNK
     Route: 048
     Dates: start: 200602, end: 200607
  4. RIVOTRIL [Concomitant]
     Active Substance: CLONAZEPAM
     Indication: BACK PAIN
     Dosage: UNK
     Route: 048
     Dates: start: 200607
  5. PREVISCAN (FLUINDIONE) [Suspect]
     Active Substance: FLUINDIONE
     Indication: PRODUCT USED FOR UNKNOWN INDICATION
     Dosage: UNK
     Route: 065
     Dates: start: 200607, end: 20060816
  6. DI ANTALVIC [Concomitant]
     Active Substance: ACETAMINOPHEN\PROPOXYPHENE HYDROCHLORIDE
     Indication: BACK PAIN
     Dosage: UNK
     Route: 048
     Dates: start: 200607

REACTIONS (2)
  - Arthralgia [Recovered/Resolved]
  - Myalgia [Recovered/Resolved]

NARRATIVE: CASE EVENT DATE: 200605
